FAERS Safety Report 13359213 (Version 1)
Quarter: 2017Q1

REPORT INFORMATION
  Report Type: Spontaneous
  Country: US (occurrence: US)
  Receive Date: 20170322
  Receipt Date: 20170322
  Transmission Date: 20170429
  Serious: Yes (Other)
  Sender: FDA-Public Use
  Company Number: US-PFIZER INC-2016603725

PATIENT
  Age: 3 Year
  Sex: Male

DRUGS (10)
  1. ATROPINE SULFATE. [Suspect]
     Active Substance: ATROPINE SULFATE
     Dosage: 0.4 MG, UNK (THIRD DOSE)
     Route: 042
  2. ATROPINE SULFATE. [Suspect]
     Active Substance: ATROPINE SULFATE
     Dosage: 0.2 MG, UNK (DOSES OF FROM 0.2 TO 0.3 MG EVERY 3 OR 4HOURS FOR THE NEXT 24 HOUR)
     Route: 058
  3. ETHACRYNIC ACID. [Concomitant]
     Active Substance: ETHACRYNIC ACID
     Dosage: 15 MG, UNK
  4. PRALIDOXIME CHLORIDE. [Suspect]
     Active Substance: PRALIDOXIME CHLORIDE
     Dosage: 150 MG, UNK(THREE TIMES AT INTERVALS OF 4 HOURS)
     Route: 030
  5. PRALIDOXIME CHLORIDE. [Suspect]
     Active Substance: PRALIDOXIME CHLORIDE
     Dosage: 250 MG UNK (SLOW-PUSH INJECTION)
     Route: 042
  6. ATROPINE SULFATE. [Suspect]
     Active Substance: ATROPINE SULFATE
     Dosage: 0.4 MG, UNK (ANOTHER DOSE)
     Route: 042
  7. AMINOPHYLLINE. [Concomitant]
     Active Substance: AMINOPHYLLINE
     Dosage: 1.5 ML, UNK
     Route: 042
  8. DIGOXIN. [Concomitant]
     Active Substance: DIGOXIN
     Dosage: 0.125 MG, UNK
  9. PRALIDOXIME CHLORIDE. [Suspect]
     Active Substance: PRALIDOXIME CHLORIDE
     Dosage: 500 MG, UNK
     Route: 042
  10. ATROPINE SULFATE. [Suspect]
     Active Substance: ATROPINE SULFATE
     Dosage: 0.4 MG, UNK (INITIAL DOSE)
     Route: 042

REACTIONS (4)
  - Apnoea [Recovering/Resolving]
  - Seizure [Recovering/Resolving]
  - Drug ineffective [Recovering/Resolving]
  - Cyanosis [Recovering/Resolving]
